FAERS Safety Report 9671276 (Version 2)
Quarter: 2013Q4

REPORT INFORMATION
  Report Type: Spontaneous
  Country: US (occurrence: US)
  Receive Date: 20131106
  Receipt Date: 20131122
  Transmission Date: 20140711
  Serious: Yes (Other)
  Sender: FDA-Public Use
  Company Number: US-PFIZER INC-2013312736

PATIENT
  Age: 54 Year
  Sex: Male

DRUGS (5)
  1. VIAGRA [Suspect]
     Indication: ERECTILE DYSFUNCTION
     Dosage: 50 OR 100MG (ONE DOSE ONLY)
     Route: 048
     Dates: start: 201210, end: 201210
  2. NITROSTAT [Concomitant]
     Dosage: UNK
  3. NORVASC [Concomitant]
     Dosage: UNK
  4. LOSARTAN [Concomitant]
     Dosage: UNK
  5. ASA BABY [Concomitant]
     Dosage: UNK

REACTIONS (1)
  - Retinal artery occlusion [Recovering/Resolving]
